FAERS Safety Report 22161332 (Version 2)
Quarter: 2023Q2

REPORT INFORMATION
  Report Type: Spontaneous
  Country: CO (occurrence: CO)
  Receive Date: 20230331
  Receipt Date: 20230406
  Transmission Date: 20230722
  Serious: Yes (Other)
  Sender: FDA-Public Use
  Company Number: CO-BAYER-2023A040679

PATIENT
  Sex: Female

DRUGS (1)
  1. LEVONORGESTREL [Suspect]
     Active Substance: LEVONORGESTREL
     Indication: Contraception
     Route: 015

REACTIONS (6)
  - Pregnancy with contraceptive device [None]
  - Syncope [None]
  - Device defective [None]
  - Drug ineffective [None]
  - Heavy menstrual bleeding [Recovered/Resolved]
  - Abdominal pain lower [Recovered/Resolved]
